FAERS Safety Report 20627984 (Version 1)
Quarter: 2022Q1

REPORT INFORMATION
  Report Type: Spontaneous
  Country: US (occurrence: US)
  Receive Date: 20220323
  Receipt Date: 20220323
  Transmission Date: 20220423
  Serious: Yes (Other)
  Sender: FDA-Public Use
  Company Number: US-BAYER-2022A041577

PATIENT
  Age: 61 Year
  Sex: Female

DRUGS (1)
  1. ALKA-SELTZER PLUS MAXIMUM STRENGTH COUGH, MUCUS AND CONGESTION POWERMA [Suspect]
     Active Substance: ACETAMINOPHEN\DEXTROMETHORPHAN HYDROBROMIDE\GUAIFENESIN\PHENYLEPHRINE HYDROCHLORIDE
     Indication: Product used for unknown indication
     Dosage: 2 DF
     Route: 048
     Dates: start: 20220320, end: 20220321

REACTIONS (2)
  - Choking [Recovered/Resolved]
  - Product use complaint [None]

NARRATIVE: CASE EVENT DATE: 20220320
